FAERS Safety Report 9302580 (Version 3)
Quarter: 2013Q2

REPORT INFORMATION
  Report Type: Spontaneous
  Country: GB (occurrence: None)
  Receive Date: 20130517
  Receipt Date: 20130618
  Transmission Date: 20140414
  Serious: Yes (Other)
  Sender: FDA-Public Use
  Company Number: AUR-APL-2013-04055

PATIENT
  Age: 69 Year
  Sex: Female

DRUGS (5)
  1. ALENDRONIC ACID [Suspect]
     Indication: OSTEOPOROSIS PROPHYLAXIS
     Route: 048
     Dates: start: 201106
  2. ASPIRIN (ACETYLSALICYLIC ACID) [Concomitant]
  3. GLUCOSAMINE (GLUCOSAMINE) [Concomitant]
  4. PREDNISOLONE (PREDNISOLONE) [Concomitant]
  5. SOTALOL [Concomitant]

REACTIONS (1)
  - Atrial fibrillation [None]
